FAERS Safety Report 7792687-0 (Version None)
Quarter: 2011Q4

REPORT INFORMATION
  Report Type: 
  Country: None (occurrence: None)
  Receive Date: 20111003
  Receipt Date: 20110928
  Transmission Date: 20120403
  Serious: Yes (Hospitalization, Other)
  Sender: FDA-Public Use
  Company Number: US-MERCK-1103USA01106

PATIENT
  Age: 33 Year
  Sex: Female
  Weight: 80 kg

DRUGS (8)
  1. CORTICOSTEROIDS (UNSPECIFIED) [Concomitant]
     Route: 065
     Dates: start: 19820101
  2. FOSAMAX [Suspect]
     Route: 048
     Dates: start: 20010106
  3. FOSAMAX [Suspect]
     Indication: OSTEOPOROSIS PROPHYLAXIS
     Route: 048
     Dates: start: 19990907
  4. FOSAMAX [Suspect]
     Route: 048
     Dates: start: 20040901, end: 20090225
  5. FOSAMAX [Suspect]
     Route: 048
     Dates: start: 20040901, end: 20090225
  6. FOSAMAX [Suspect]
     Route: 048
     Dates: start: 20010106
  7. FOSAMAX [Suspect]
     Indication: OSTEOPOROSIS
     Route: 048
     Dates: start: 19990907
  8. SUMATRIPTAN SUCCINATE (IMITREX) [Concomitant]
     Indication: HEADACHE
     Route: 065
     Dates: start: 19980101

REACTIONS (26)
  - RECTAL PROLAPSE [None]
  - FRACTURE NONUNION [None]
  - NEOPLASM MALIGNANT [None]
  - SUBCUTANEOUS ABSCESS [None]
  - LOW TURNOVER OSTEOPATHY [None]
  - HYPERCHOLESTEROLAEMIA [None]
  - FIBULA FRACTURE [None]
  - BACTERIAL INFECTION [None]
  - OSTEOARTHRITIS [None]
  - BURSITIS [None]
  - UTERINE LEIOMYOMA [None]
  - FEMUR FRACTURE [None]
  - ANAEMIA [None]
  - TIBIA FRACTURE [None]
  - FOOT FRACTURE [None]
  - OVARIAN CYST [None]
  - SKIN PAPILLOMA [None]
  - MENISCUS LESION [None]
  - HYPERTENSION [None]
  - FUNGAL INFECTION [None]
  - FALL [None]
  - MYASTHENIA GRAVIS [None]
  - DRUG HYPERSENSITIVITY [None]
  - GOUT [None]
  - RENAL FAILURE CHRONIC [None]
  - PATELLOFEMORAL PAIN SYNDROME [None]
